FAERS Safety Report 7314672-5 (Version None)
Quarter: 2011Q1

REPORT INFORMATION
  Report Type: 
  Country: None (occurrence: None)
  Receive Date: 20110225
  Receipt Date: 20101101
  Transmission Date: 20110831
  Serious: No
  Sender: FDA-Public Use
  Company Number: US-MYLANLABS-2010S1020245

PATIENT
  Sex: Female

DRUGS (3)
  1. LEVAQUIN [Concomitant]
  2. AMNESTEEM [Suspect]
     Indication: ACNE
     Route: 048
     Dates: start: 20101001, end: 20101101
  3. AMNESTEEM [Suspect]
     Route: 048
     Dates: start: 20101101

REACTIONS (1)
  - HEADACHE [None]
